FAERS Safety Report 5162107-3 (Version None)
Quarter: 2006Q4

REPORT INFORMATION
  Report Type: 
  Country: None (occurrence: None)
  Receive Date: 20061121
  Receipt Date: 20061107
  Transmission Date: 20070319
  Serious: Yes (Hospitalization)
  Sender: FDA-Public Use
  Company Number: 2006RR-04477

PATIENT
  Sex: Male

DRUGS (3)
  1. CODEINE PHOSPHATE [Suspect]
  2. PAROXETINE (PAROXETINE) UNKNOWN [Suspect]
  3. PARACETAMOL (PARACETAMOL) UNKNOWN [Suspect]

REACTIONS (5)
  - DRUG WITHDRAWAL SYNDROME [None]
  - FALL [None]
  - INTENTIONAL SELF-INJURY [None]
  - OVERDOSE [None]
  - SUICIDAL IDEATION [None]
